FAERS Safety Report 14959767 (Version 2)
Quarter: 2019Q2

REPORT INFORMATION
  Report Type: Spontaneous
  Country: US (occurrence: US)
  Receive Date: 20180531
  Receipt Date: 20190628
  Transmission Date: 20190711
  Serious: No
  Sender: FDA-Public Use
  Company Number: US-BIOGEN-2018BI00588196

PATIENT
  Age: 53 Year
  Sex: Female

DRUGS (1)
  1. TECFIDERA [Suspect]
     Active Substance: DIMETHYL FUMARATE
     Indication: MULTIPLE SCLEROSIS
     Route: 050
     Dates: start: 20180316, end: 201902

REACTIONS (5)
  - Weight increased [Recovered/Resolved]
  - Hyperphagia [Recovered/Resolved]
  - Pain in extremity [Unknown]
  - Urinary incontinence [Unknown]
  - Back pain [Unknown]

NARRATIVE: CASE EVENT DATE: 20180329
